FAERS Safety Report 23342466 (Version 4)
Quarter: 2024Q4

REPORT INFORMATION
  Report Type: Spontaneous
  Country: US (occurrence: US)
  Receive Date: 20231227
  Receipt Date: 20241106
  Transmission Date: 20250115
  Serious: Yes (Hospitalization, Other)
  Sender: PFIZER
  Company Number: US-PFIZER INC-PV202300206067

PATIENT
  Age: 60 Year
  Sex: Female
  Weight: 85.4 kg

DRUGS (7)
  1. BRAFTOVI [Suspect]
     Active Substance: ENCORAFENIB
     Indication: Breast cancer female
     Dosage: TAKE 450 MG (6 CAPSULES) BY MOUTH ONCE A DAY
     Route: 048
     Dates: start: 202204
  2. BRAFTOVI [Suspect]
     Active Substance: ENCORAFENIB
     Indication: Malignant neoplasm progression
     Dosage: TAKE 450 MG BY MOUTH DAILY
     Route: 048
  3. BRAFTOVI [Suspect]
     Active Substance: ENCORAFENIB
     Indication: Breast cancer metastatic
  4. BRAFTOVI [Suspect]
     Active Substance: ENCORAFENIB
     Indication: Metaplastic breast carcinoma
  5. NITROGLYCERIN [Suspect]
     Active Substance: NITROGLYCERIN
     Indication: Chest pain
     Dosage: TAKE 1 TABLET (0.4 MG) BY SUBLINGUAL ROUTE EVERY 5 MINUTES
     Route: 060
  6. MEKINIST [Concomitant]
     Active Substance: TRAMETINIB DIMETHYL SULFOXIDE
     Indication: Neoplasm malignant
     Dosage: UNK
     Dates: start: 20191216
  7. MEKINIST [Concomitant]
     Active Substance: TRAMETINIB DIMETHYL SULFOXIDE
     Indication: Breast cancer metastatic

REACTIONS (4)
  - Acute myocardial infarction [Unknown]
  - Cerebrovascular accident [Unknown]
  - Off label use [Unknown]
  - Tenderness [Unknown]

NARRATIVE: CASE EVENT DATE: 20230226
